FAERS Safety Report 4712043-9 (Version None)
Quarter: 2005Q3

REPORT INFORMATION
  Report Type: 
  Country: None (occurrence: None)
  Receive Date: 20050712
  Receipt Date: 20050706
  Transmission Date: 20060218
  Serious: Yes (Other)
  Sender: FDA-Public Use
  Company Number: US-JNJFOC-20050500822

PATIENT
  Sex: Female

DRUGS (5)
  1. LEVAQUIN [Suspect]
     Route: 049
  2. LEVAQUIN [Suspect]
     Route: 049
  3. THALOMID [Concomitant]
     Indication: MULTIPLE MYELOMA
     Route: 049
  4. DEXAMETHASONE [Concomitant]
  5. COUMADIN [Concomitant]
     Route: 049

REACTIONS (3)
  - FIBROMYALGIA [None]
  - MULTIPLE MYELOMA [None]
  - TENDONITIS [None]
